FAERS Safety Report 6752575-5 (Version None)
Quarter: 2010Q2

REPORT INFORMATION
  Report Type: 
  Country: None (occurrence: None)
  Receive Date: 20100602
  Receipt Date: 20100525
  Transmission Date: 20101027
  Serious: Yes (Other)
  Sender: FDA-Public Use
  Company Number: US-AMGEN-KDC407102

PATIENT
  Sex: Female
  Weight: 97.2 kg

DRUGS (4)
  1. ETANERCEPT [Suspect]
     Indication: PSORIASIS
     Route: 058
     Dates: start: 20100310
  2. ETANERCEPT - NON-AMGEN IMP (METHOTREXATE - BLINDED) [Suspect]
     Route: 048
     Dates: start: 20100310
  3. PROMETHAZINE [Concomitant]
     Route: 048
  4. VICODIN [Concomitant]
     Route: 048

REACTIONS (2)
  - CHOLECYSTITIS [None]
  - CHOLELITHIASIS [None]
